FAERS Safety Report 7125331-6 (Version None)
Quarter: 2010Q4

REPORT INFORMATION
  Report Type: 
  Country: None (occurrence: None)
  Receive Date: 20101115
  Receipt Date: 20100218
  Transmission Date: 20110411
  Serious: Yes (Hospitalization, Other)
  Sender: FDA-Public Use
  Company Number: 2010SP010746

PATIENT
  Age: 26 Year
  Sex: Female
  Weight: 81.6475 kg

DRUGS (1)
  1. NUVARING [Suspect]
     Indication: PREGNANCY
     Dates: start: 20080101

REACTIONS (7)
  - ASTHMA [None]
  - DEEP VEIN THROMBOSIS [None]
  - INFECTION [None]
  - OVARIAN CYST [None]
  - PNEUMONIA [None]
  - PULMONARY EMBOLISM [None]
  - THROMBOPHLEBITIS [None]
